FAERS Safety Report 20426442 (Version 1)
Quarter: 2022Q1

REPORT INFORMATION
  Report Type: Report from Study
  Country: US (occurrence: US)
  Receive Date: 20220204
  Receipt Date: 20220204
  Transmission Date: 20220423
  Serious: No
  Sender: FDA-Public Use
  Company Number: US-EXELIXIS-CABO-21042923

PATIENT
  Age: 68 Year
  Sex: Female

DRUGS (11)
  1. CABOMETYX [Suspect]
     Active Substance: CABOZANTINIB S-MALATE
     Indication: Clear cell renal cell carcinoma
     Dosage: 60 MG, QD
     Dates: start: 20200801
  2. CABOMETYX [Suspect]
     Active Substance: CABOZANTINIB S-MALATE
     Dosage: 40 MG, QD
  3. CABOMETYX [Suspect]
     Active Substance: CABOZANTINIB S-MALATE
     Dosage: 40 MG, QD (TOOK 3 TO 5 DAYS OFF EVERY MONTH)
  4. XARELTO [Concomitant]
     Active Substance: RIVAROXABAN
     Indication: Vena cava embolism
  5. COMPAZINE [Concomitant]
     Active Substance: PROCHLORPERAZINE MALEATE
  6. TESSALON [Concomitant]
     Active Substance: BENZONATATE
  7. ATIVAN [Concomitant]
     Active Substance: LORAZEPAM
  8. ZOFRAN [Concomitant]
     Active Substance: ONDANSETRON HYDROCHLORIDE
  9. DEXAMETHASONE [Concomitant]
     Active Substance: DEXAMETHASONE
  10. EUTHYROX [Concomitant]
     Active Substance: LEVOTHYROXINE SODIUM
  11. DIPHENHYDRAMINE HYDROCHLORIDE\LIDOCAINE HYDROCHLORIDE\NYSTATIN [Concomitant]
     Active Substance: DIPHENHYDRAMINE HYDROCHLORIDE\LIDOCAINE HYDROCHLORIDE\NYSTATIN

REACTIONS (11)
  - Oropharyngeal pain [Unknown]
  - Skin irritation [Unknown]
  - Hypertension [Recovering/Resolving]
  - Fatigue [Recovering/Resolving]
  - Nausea [Recovering/Resolving]
  - Diarrhoea [Not Recovered/Not Resolved]
  - Mucosal inflammation [Not Recovered/Not Resolved]
  - Blood albumin decreased [Unknown]
  - Hypotension [Not Recovered/Not Resolved]
  - Headache [Unknown]
  - Inappropriate schedule of product administration [Unknown]

NARRATIVE: CASE EVENT DATE: 20210708
